FAERS Safety Report 7830306-5 (Version None)
Quarter: 2011Q4

REPORT INFORMATION
  Report Type: 
  Country: None (occurrence: None)
  Receive Date: 20111021
  Receipt Date: 20111013
  Transmission Date: 20120403
  Serious: Yes (Other)
  Sender: FDA-Public Use
  Company Number: ES-BRISTOL-MYERS SQUIBB COMPANY-16176752

PATIENT
  Age: 58 Year
  Sex: Male

DRUGS (7)
  1. ATORVASTATIN [Concomitant]
     Indication: HYPERTENSION
     Dates: start: 20020101
  2. AMLODIPINE [Suspect]
     Dates: start: 20100101
  3. GLIMEPIRIDE [Concomitant]
     Indication: DIABETES MELLITUS
     Dates: start: 20020101
  4. METFORMIN HCL [Suspect]
     Dates: start: 20100101
  5. DOXAZOSIN MESYLATE [Suspect]
     Dates: start: 20100101
  6. EZETIMIBE [Suspect]
  7. ENALAPRIL MALEATE AND HYDROCHLOROTHIAZIDE [Concomitant]
     Indication: HYPERTENSION
     Dosage: 1DF=20+12.5MG.
     Dates: start: 20020101

REACTIONS (1)
  - HEPATITIS ACUTE [None]
